FAERS Safety Report 8053719-8 (Version None)
Quarter: 2012Q1

REPORT INFORMATION
  Report Type: 
  Country: None (occurrence: None)
  Receive Date: 20120118
  Receipt Date: 20120113
  Transmission Date: 20120608
  Serious: No
  Sender: FDA-Public Use
  Company Number: US-BAYER-2012-005091

PATIENT

DRUGS (2)
  1. ALEVE (CAPLET) [Suspect]
     Route: 048
  2. UNCODEABLE ^UNCLASSIFIABLE^ [Concomitant]

REACTIONS (4)
  - COUGH [None]
  - NO ADVERSE EVENT [None]
  - SOMNOLENCE [None]
  - PYREXIA [None]
